FAERS Safety Report 7669956-8 (Version None)
Quarter: 2011Q3

REPORT INFORMATION
  Report Type: 
  Country: None (occurrence: None)
  Receive Date: 20110808
  Receipt Date: 20110804
  Transmission Date: 20111222
  Serious: Yes (Death, Hospitalization)
  Sender: FDA-Public Use
  Company Number: US-AMGEN-USASP2011007321

PATIENT
  Age: 78 Year
  Sex: Female

DRUGS (15)
  1. LORATADINE [Concomitant]
  2. FLORASTOR [Concomitant]
  3. NPLATE [Suspect]
     Indication: IDIOPATHIC THROMBOCYTOPENIC PURPURA
     Dosage: 1 A?G/KG, UNK
     Dates: start: 20100805
  4. INSULIN [Concomitant]
  5. LASIX [Concomitant]
  6. CORTICOSTEROIDS [Concomitant]
     Indication: IDIOPATHIC THROMBOCYTOPENIC PURPURA
  7. CELEXA [Concomitant]
  8. LACRI-LUBE [Concomitant]
  9. FLAGYL [Concomitant]
  10. LEVAQUIN [Concomitant]
  11. ASPIRIN [Concomitant]
  12. PROTONIX [Concomitant]
  13. COUMADIN [Concomitant]
  14. CARDIZEM [Concomitant]
  15. OXYBUTYNIN [Concomitant]

REACTIONS (5)
  - LETHARGY [None]
  - DEATH [None]
  - CEREBROVASCULAR ACCIDENT [None]
  - ASTHENIA [None]
  - HOSPITALISATION [None]
